FAERS Safety Report 22303462 (Version 3)
Quarter: 2023Q2

REPORT INFORMATION
  Report Type: Spontaneous
  Country: NZ (occurrence: NZ)
  Receive Date: 20230510
  Receipt Date: 20230613
  Transmission Date: 20230722
  Serious: No
  Sender: FDA-Public Use
  Company Number: NZ-PFIZER INC-PV202300077342

PATIENT
  Age: 40 Year
  Sex: Female

DRUGS (1)
  1. ENBREL [Suspect]
     Active Substance: ETANERCEPT
     Indication: Arthritis
     Dosage: 1 DF, 2X/WEEK (1 INJECTION, TWICE A WEEK FOR 12 WEEKS)
     Route: 030
     Dates: start: 20230314, end: 2023

REACTIONS (5)
  - Needle issue [Unknown]
  - Device information output issue [Unknown]
  - Device use error [Unknown]
  - Drug dose omission by device [Unknown]
  - Off label use [Unknown]

NARRATIVE: CASE EVENT DATE: 20230101
